FAERS Safety Report 17596527 (Version 3)
Quarter: 2020Q3

REPORT INFORMATION
  Report Type: Report from Study
  Country: FR (occurrence: FR)
  Receive Date: 20200330
  Receipt Date: 20200911
  Transmission Date: 20201102
  Serious: Yes (Other)
  Sender: FDA-Public Use
  Company Number: FR-TAKEDA-2020TEU003461

PATIENT
  Age: 8 Year
  Sex: Female
  Weight: 23.3 kg

DRUGS (5)
  1. PHLOROGLUCINOL [Concomitant]
     Active Substance: PHLOROGLUCINOL
     Indication: ABDOMINAL PAIN UPPER
     Dosage: 80 MILLIGRAM, BID
     Route: 048
     Dates: start: 20200309, end: 20200309
  2. PHLOROGLUCINOL [Concomitant]
     Active Substance: PHLOROGLUCINOL
     Dosage: 80 MILLIGRAM
     Route: 048
     Dates: start: 20200312, end: 20200312
  3. DESLORATADIN [Concomitant]
     Active Substance: DESLORATADINE
     Indication: PRURITUS
     Dosage: 5 MILLILITER
     Route: 048
     Dates: start: 20200305, end: 20200313
  4. VORTIOXETINE. [Suspect]
     Active Substance: VORTIOXETINE
     Indication: MAJOR DEPRESSION
     Dosage: UNK
     Route: 048
     Dates: start: 20200201, end: 20200315
  5. PARACETAMOL [Concomitant]
     Active Substance: ACETAMINOPHEN
     Indication: ABDOMINAL PAIN UPPER
     Dosage: 500 MILLIGRAM
     Route: 048
     Dates: start: 20200309, end: 20200309

REACTIONS (1)
  - Mania [Recovered/Resolved]

NARRATIVE: CASE EVENT DATE: 20200315
